FAERS Safety Report 5657102-1 (Version None)
Quarter: 2008Q1

REPORT INFORMATION
  Report Type: 
  Country: None (occurrence: None)
  Receive Date: 20080310
  Receipt Date: 20080228
  Transmission Date: 20080703
  Serious: Yes (Other)
  Sender: FDA-Public Use
  Company Number: ES-JNJFOC-20080206577

PATIENT
  Age: 9 Decade
  Sex: Female

DRUGS (3)
  1. TAVANIC [Suspect]
     Indication: PNEUMONITIS
     Route: 048
  2. VITAMINS [Concomitant]
     Route: 065
  3. UNSPECIFIED CIRCULATORY MEDICATION [Concomitant]
     Indication: POOR PERIPHERAL CIRCULATION
     Route: 065

REACTIONS (1)
  - DELIRIUM [None]
